FAERS Safety Report 24126791 (Version 1)
Quarter: 2024Q3

REPORT INFORMATION
  Report Type: Spontaneous
  Country: US (occurrence: US)
  Receive Date: 20240723
  Receipt Date: 20240723
  Transmission Date: 20241017
  Serious: No
  Sender: MYLAN
  Company Number: US-MYLANLABS-2024M1017054

PATIENT
  Sex: Male

DRUGS (3)
  1. LATANOPROST [Suspect]
     Active Substance: LATANOPROST
     Indication: Glaucoma
     Dosage: 50 MICROGRAM, QD
     Route: 047
  2. LATANOPROST [Suspect]
     Active Substance: LATANOPROST
     Dosage: UNK
     Route: 047
  3. LATANOPROST [Suspect]
     Active Substance: LATANOPROST
     Dosage: UNK
     Route: 065

REACTIONS (3)
  - Poor quality product administered [Unknown]
  - Product odour abnormal [Unknown]
  - Product quality issue [Unknown]
